FAERS Safety Report 25188019 (Version 2)
Quarter: 2025Q2

REPORT INFORMATION
  Report Type: Spontaneous
  Country: US (occurrence: US)
  Receive Date: 20250411
  Receipt Date: 20250502
  Transmission Date: 20250717
  Serious: No
  Sender: Unknown Manufacturer
  Company Number: US-Kiniksa Pharmaceuticals Ltd.-2025KPU000840

PATIENT
  Sex: Female

DRUGS (2)
  1. ARCALYST [Suspect]
     Active Substance: RILONACEPT
     Indication: Pericarditis
     Dosage: 160 MILLIGRAM, QW
     Dates: start: 20250314
  2. COLCHICINE [Concomitant]
     Active Substance: COLCHICINE
     Indication: Product used for unknown indication

REACTIONS (12)
  - Drug ineffective [Unknown]
  - Malaise [Not Recovered/Not Resolved]
  - Therapeutic product effect delayed [Unknown]
  - Pain [Not Recovered/Not Resolved]
  - Condition aggravated [Recovering/Resolving]
  - Chest pain [Recovering/Resolving]
  - Dyspnoea [Recovering/Resolving]
  - Pain in extremity [Recovering/Resolving]
  - Nausea [Recovering/Resolving]
  - Dizziness [Recovering/Resolving]
  - Chest discomfort [Recovering/Resolving]
  - Fatigue [Not Recovered/Not Resolved]
